FAERS Safety Report 5912363-6 (Version None)
Quarter: 2008Q4

REPORT INFORMATION
  Report Type: 
  Country: None (occurrence: None)
  Receive Date: 20081006
  Receipt Date: 20080918
  Transmission Date: 20090506
  Serious: Yes (Other)
  Sender: FDA-Public Use
  Company Number: ADE2008-0309

PATIENT
  Sex: Female

DRUGS (2)
  1. AMLODIPINE [Suspect]
     Dosage: 10MG -QD
  2. BENDROFLUMETHIAZIDE [Suspect]

REACTIONS (2)
  - ABORTION SPONTANEOUS [None]
  - DRUG EXPOSURE DURING PREGNANCY [None]
